FAERS Safety Report 17877499 (Version 14)
Quarter: 2021Q1

REPORT INFORMATION
  Report Type: Report from Study
  Country: AT (occurrence: AT)
  Receive Date: 20200609
  Receipt Date: 20210206
  Transmission Date: 20210419
  Serious: Yes (Other)
  Sender: FDA-Public Use
  Company Number: AT-AMGEN-AUTNI2020090125

PATIENT
  Sex: Male
  Weight: 102 kg

DRUGS (10)
  1. ZOLDEM [Concomitant]
     Active Substance: ZOLPIDEM TARTRATE
     Dosage: 10 MILLIGRAM
     Route: 048
  2. HYDAL [Concomitant]
     Active Substance: HYDROMORPHONE HYDROCHLORIDE
     Dosage: 1.3 MILLIGRAM
     Route: 048
  3. PANITUMUMAB [Suspect]
     Active Substance: PANITUMUMAB
     Indication: COLORECTAL CANCER METASTATIC
     Dosage: 642 MILLIGRAM
     Route: 042
     Dates: start: 20190708
  4. CALCIUMFOLINAT [Concomitant]
     Active Substance: LEUCOVORIN CALCIUM
     Indication: COLORECTAL CANCER METASTATIC
     Dosage: UNK
     Dates: start: 20200327
  5. EXCIPIAL LIPO [Concomitant]
     Active Substance: COSMETICS
     Dosage: 275000 MILLIGRAM
     Route: 061
     Dates: start: 20200306
  6. FLUOROURACIL. [Concomitant]
     Active Substance: FLUOROURACIL
     Indication: COLORECTAL CANCER METASTATIC
     Dosage: UNK
     Dates: start: 20200327
  7. FORTECORTIN [DEXAMETHASONE ACETATE] [Concomitant]
     Active Substance: DEXAMETHASONE ACETATE
     Dosage: 8 MILLIGRAM
     Route: 048
     Dates: start: 20190708
  8. PREGABALIN. [Concomitant]
     Active Substance: PREGABALIN
     Indication: POLYNEUROPATHY
     Dosage: 100 MILLIGRAM
     Route: 048
     Dates: end: 20200914
  9. EMEND [Concomitant]
     Active Substance: APREPITANT
     Dosage: 80 MILLIGRAM
     Route: 048
     Dates: start: 20190708
  10. TRAMAL [Concomitant]
     Active Substance: TRAMADOL
     Dosage: 200 MILLIGRAM
     Route: 048

REACTIONS (3)
  - Polyneuropathy [Recovered/Resolved]
  - Rash [Not Recovered/Not Resolved]
  - Hypokalaemia [Recovered/Resolved]

NARRATIVE: CASE EVENT DATE: 20200508
